FAERS Safety Report 15056868 (Version 1)
Quarter: 2018Q2

REPORT INFORMATION
  Report Type: Spontaneous
  Country: US (occurrence: US)
  Receive Date: 20180604
  Receipt Date: 20180604
  Transmission Date: 20180711
  Serious: Yes (Disabling, Other)
  Sender: FDA-Public Use
  Company Number: None

PATIENT
  Age: 62 Year
  Sex: Female
  Weight: 70.76 kg

DRUGS (3)
  1. MAJOR VITAMINS [Concomitant]
  2. RECLAST [Suspect]
     Active Substance: ZOLEDRONIC ACID
     Indication: OSTEOPOROSIS
     Dosage: 1 TIME INJECTION INFUSION
     Dates: start: 20180405, end: 20180405
  3. PAIN PILLS [Concomitant]
     Active Substance: UNSPECIFIED INGREDIENT

REACTIONS (5)
  - Pain [None]
  - Pain in jaw [None]
  - Toothache [None]
  - Rash [None]
  - Feeding disorder [None]

NARRATIVE: CASE EVENT DATE: 20180501
